FAERS Safety Report 4697770-4 (Version None)
Quarter: 2005Q2

REPORT INFORMATION
  Report Type: 
  Country: None (occurrence: None)
  Receive Date: 20050621
  Receipt Date: 20050615
  Transmission Date: 20051028
  Serious: Yes (Other)
  Sender: FDA-Public Use
  Company Number: 200510438BWH

PATIENT
  Age: 59 Year
  Sex: Male

DRUGS (1)
  1. AVELOX [Suspect]
     Indication: BRONCHITIS
     Dosage: 400 MG, ONCE, ORAL
     Route: 048
     Dates: start: 20050127

REACTIONS (9)
  - ALCOHOL USE [None]
  - DIFFICULTY IN WALKING [None]
  - DIZZINESS [None]
  - FEELING DRUNK [None]
  - FLUSHING [None]
  - HYPERTENSION [None]
  - NERVOUSNESS [None]
  - PANIC ATTACK [None]
  - TACHYCARDIA [None]
